FAERS Safety Report 10447864 (Version 5)
Quarter: 2014Q4

REPORT INFORMATION
  Report Type: Spontaneous
  Country: US (occurrence: US)
  Receive Date: 20140911
  Receipt Date: 20141125
  Transmission Date: 20150528
  Serious: Yes (Death, Hospitalization, Other)
  Sender: FDA-Public Use
  Company Number: US-009507513-1409USA005055

PATIENT
  Sex: Female
  Weight: 54.42 kg

DRUGS (1)
  1. JANUMET [Suspect]
     Active Substance: METFORMIN HYDROCHLORIDE\SITAGLIPTIN PHOSPHATE
     Indication: TYPE 2 DIABETES MELLITUS
     Dosage: 50/1000 MG BID
     Route: 048
     Dates: start: 20091207, end: 20120415

REACTIONS (25)
  - Pancreatic carcinoma metastatic [Fatal]
  - Tachycardia [Not Recovered/Not Resolved]
  - Stress [Unknown]
  - Malignant ascites [Unknown]
  - Malignant pleural effusion [Not Recovered/Not Resolved]
  - Pulmonary embolism [Unknown]
  - Blood cholesterol increased [Unknown]
  - Tachypnoea [Unknown]
  - Adnexa uteri mass [Unknown]
  - Hepatic mass [Unknown]
  - Haemorrhoids [Unknown]
  - Hyponatraemia [Unknown]
  - Salpingo-oophorectomy bilateral [Unknown]
  - Omentectomy [Unknown]
  - Haemoglobin decreased [Recovering/Resolving]
  - Skin lesion [Unknown]
  - Large intestine polyp [Unknown]
  - Infectious pleural effusion [Unknown]
  - Hysterectomy [Unknown]
  - Hypertension [Unknown]
  - Pollakiuria [Unknown]
  - Nodule [Unknown]
  - Peritonitis bacterial [Unknown]
  - Dry eye [Unknown]
  - Gastrooesophageal reflux disease [Unknown]

NARRATIVE: CASE EVENT DATE: 2010
